FAERS Safety Report 25486017 (Version 1)
Quarter: 2025Q2

REPORT INFORMATION
  Report Type: Spontaneous
  Country: US (occurrence: US)
  Receive Date: 20250626
  Receipt Date: 20250626
  Transmission Date: 20250717
  Serious: No
  Sender: GALDERMA
  Company Number: US-GALDERMA-US2025006914

PATIENT

DRUGS (1)
  1. NEMLUVIO [Suspect]
     Active Substance: NEMOLIZUMAB-ILTO
     Indication: Dermatitis atopic
     Route: 058
     Dates: start: 202502, end: 202502

REACTIONS (7)
  - Impetigo [Unknown]
  - Peripheral swelling [Unknown]
  - Fluid retention [Unknown]
  - Skin weeping [Unknown]
  - Pain in extremity [Unknown]
  - Pruritus [Unknown]
  - Skin discolouration [Unknown]

NARRATIVE: CASE EVENT DATE: 20250101
